FAERS Safety Report 8592200-4 (Version None)
Quarter: 2012Q3

REPORT INFORMATION
  Report Type: 
  Country: None (occurrence: None)
  Receive Date: 20120814
  Receipt Date: 20120803
  Transmission Date: 20120928
  Serious: Yes (Death)
  Sender: FDA-Public Use
  Company Number: IT-CELGENEUS-083-21880-12080577

PATIENT
  Sex: Male

DRUGS (2)
  1. DEXAMETHASONE [Concomitant]
     Route: 065
  2. REVLIMID [Suspect]
     Indication: PRIMARY MEDIASTINAL LARGE B-CELL LYMPHOMA
     Route: 048
     Dates: start: 20110204, end: 20110318

REACTIONS (2)
  - NEOPLASM PROGRESSION [None]
  - DISEASE PROGRESSION [None]
